FAERS Safety Report 5422219-3 (Version None)
Quarter: 2007Q3

REPORT INFORMATION
  Report Type: 
  Country: None (occurrence: None)
  Receive Date: 20070821
  Receipt Date: 20070821
  Transmission Date: 20080115
  Serious: Yes (Death)
  Sender: FDA-Public Use
  Company Number: None

PATIENT
  Age: 66 Year
  Sex: Male
  Weight: 62.5964 kg

DRUGS (1)
  1. COUMADIN [Suspect]

REACTIONS (15)
  - DEPRESSED LEVEL OF CONSCIOUSNESS [None]
  - GASTROINTESTINAL HAEMORRHAGE [None]
  - GENERALISED OEDEMA [None]
  - HYPOGLYCAEMIA [None]
  - HYPOTENSION [None]
  - ILL-DEFINED DISORDER [None]
  - INTERNATIONAL NORMALISED RATIO INCREASED [None]
  - MELAENA [None]
  - MENTAL STATUS CHANGES [None]
  - METABOLIC ACIDOSIS [None]
  - MULTI-ORGAN FAILURE [None]
  - NAUSEA [None]
  - RENAL FAILURE [None]
  - RESPIRATORY DISTRESS [None]
  - VOMITING [None]
